FAERS Safety Report 5823586-9 (Version None)
Quarter: 2008Q3

REPORT INFORMATION
  Report Type: 
  Country: None (occurrence: None)
  Receive Date: 20080725
  Receipt Date: 20080716
  Transmission Date: 20090109
  Serious: Yes (Hospitalization)
  Sender: FDA-Public Use
  Company Number: FR-BOEHRINGER INGELHEIM GMBH, GERMANY-2008-FF-00448FF

PATIENT
  Sex: Female

DRUGS (3)
  1. VIRAMUNE [Suspect]
     Indication: HIV INFECTION
     Route: 048
     Dates: start: 20080410, end: 20080425
  2. VIRAMUNE [Suspect]
     Route: 048
     Dates: start: 20080426, end: 20080523
  3. TRUVADA [Suspect]
     Indication: HIV INFECTION
     Route: 048
     Dates: start: 20080410, end: 20080526

REACTIONS (5)
  - ASTHENIA [None]
  - CELL DEATH [None]
  - NAUSEA [None]
  - OCULAR ICTERUS [None]
  - VOMITING [None]
